FAERS Safety Report 8770431 (Version 1)
Quarter: 2012Q4

REPORT INFORMATION
  Report Type: 
  Country: US (occurrence: US)
  Receive Date: 20120906
  Receipt Date: 20120906
  Transmission Date: 20130627
  Serious: Yes (Other)
  Sender: FDA-Public Use
  Company Number: US-JNJFOC-20120814763

PATIENT
  Age: 46 Year
  Sex: Male

DRUGS (2)
  1. NICOTINE POLACRILEX STOP SMOKING AID [Suspect]
     Indication: SMOKING CESSATION THERAPY
     Route: 048
  2. NICOTINE POLACRILEX GUM [Suspect]
     Indication: SMOKING CESSATION THERAPY
     Route: 048

REACTIONS (3)
  - Nicotine dependence [Not Recovered/Not Resolved]
  - Intentional drug misuse [Unknown]
  - Product quality issue [Unknown]
